FAERS Safety Report 4506141-2 (Version None)
Quarter: 2004Q4

REPORT INFORMATION
  Report Type: 
  Country: None (occurrence: None)
  Receive Date: 20041025
  Receipt Date: 20040420
  Transmission Date: 20050328
  Serious: Yes (Hospitalization)
  Sender: FDA-Public Use
  Company Number: US-JNJFOC-20040404331

PATIENT
  Sex: Male

DRUGS (2)
  1. REMICADE [Suspect]
     Indication: GRAFT VERSUS HOST DISEASE
     Dosage: INTRAVENOUS
     Route: 042
  2. NARCOTICS (ANALGESICS) [Suspect]
     Indication: DRUG USE FOR UNKNOWN INDICATION
     Dosage: INTRAVENOUS
     Route: 042

REACTIONS (1)
  - ILEUS PARALYTIC [None]
